FAERS Safety Report 21740526 (Version 1)
Quarter: 2022Q4

REPORT INFORMATION
  Report Type: Report from Study
  Country: ES (occurrence: ES)
  Receive Date: 20221216
  Receipt Date: 20221216
  Transmission Date: 20230113
  Serious: Yes (Hospitalization)
  Sender: FDA-Public Use
  Company Number: ES-JNJFOC-20220845498

PATIENT
  Age: 8 Decade
  Sex: Male
  Weight: 67 kg

DRUGS (7)
  1. TADALAFIL [Suspect]
     Active Substance: TADALAFIL
     Indication: Pulmonary hypertension
     Dosage: 40 MILLIGRAM
     Route: 048
     Dates: start: 20220720, end: 20220727
  2. TADALAFIL [Suspect]
     Active Substance: TADALAFIL
     Dosage: 20 MILLIGRAM
     Route: 048
     Dates: start: 20220823, end: 20220829
  3. TADALAFIL [Suspect]
     Active Substance: TADALAFIL
     Dosage: 40 MILLIGRAM
     Route: 048
     Dates: start: 20220830, end: 20220905
  4. MACITENTAN [Suspect]
     Active Substance: MACITENTAN
     Indication: Pulmonary hypertension
     Dosage: 10 MILLIGRAM, QD
     Route: 048
     Dates: start: 20220720, end: 20220727
  5. MACITENTAN [Suspect]
     Active Substance: MACITENTAN
     Dosage: 10 MILLIGRAM, QD
     Route: 048
     Dates: start: 20220906, end: 20221002
  6. OXYGEN [Concomitant]
     Active Substance: OXYGEN
     Indication: Pulmonary hypertension
     Dosage: UNK
     Dates: start: 20220719
  7. GLYCOPYRRONIUM\INDACATEROL [Concomitant]
     Active Substance: GLYCOPYRRONIUM\INDACATEROL
     Indication: Pulmonary hypertension
     Dosage: UNK
     Dates: start: 20220823

REACTIONS (3)
  - Pulmonary arterial hypertension [Unknown]
  - Dyspnoea [Unknown]
  - Headache [Unknown]

NARRATIVE: CASE EVENT DATE: 20220727
